FAERS Safety Report 6288165-0 (Version None)
Quarter: 2009Q3

REPORT INFORMATION
  Report Type: 
  Country: None (occurrence: None)
  Receive Date: 20090729
  Receipt Date: 20090717
  Transmission Date: 20100115
  Serious: Yes (Death)
  Sender: FDA-Public Use
  Company Number: JP-PFIZER INC-2009222522

PATIENT
  Age: 64 Year

DRUGS (6)
  1. SUNITINIB MALATE [Suspect]
     Indication: RENAL CELL CARCINOMA
     Dosage: 37.5 MG, UNK
     Route: 048
     Dates: start: 20090320, end: 20090416
  2. LASIX [Concomitant]
  3. CIMETIDINE [Concomitant]
  4. LOXONIN [Concomitant]
  5. DEPAS [Concomitant]
  6. THYRADIN S [Concomitant]

REACTIONS (1)
  - DEATH [None]
